FAERS Safety Report 4661413-6 (Version None)
Quarter: 2005Q2

REPORT INFORMATION
  Report Type: 
  Country: None (occurrence: None)
  Receive Date: 20050513
  Receipt Date: 20050505
  Transmission Date: 20051028
  Serious: Yes (Death)
  Sender: FDA-Public Use
  Company Number: CA-GLAXOSMITHKLINE-A0557602A

PATIENT
  Age: 71 Year
  Sex: Female

DRUGS (7)
  1. LAMICTAL [Suspect]
     Indication: DRUG USE FOR UNKNOWN INDICATION
     Dosage: 250MG PER DAY
     Route: 048
  2. LEVAQUIN [Suspect]
     Indication: DRUG USE FOR UNKNOWN INDICATION
     Dosage: 250MG PER DAY
     Route: 042
  3. DOCUSATE SODIUM [Concomitant]
  4. HUMULIN R [Concomitant]
  5. METRONIDAZOLE [Concomitant]
  6. NICOTINE [Concomitant]
  7. SIMVASTATIN [Concomitant]

REACTIONS (8)
  - BLISTER [None]
  - FACE OEDEMA [None]
  - LEUKOCYTOSIS [None]
  - MEDICATION ERROR [None]
  - OEDEMA MOUTH [None]
  - PRURITUS [None]
  - PYREXIA [None]
  - RASH [None]
